FAERS Safety Report 5290340-9 (Version None)
Quarter: 2007Q2

REPORT INFORMATION
  Report Type: 
  Country: None (occurrence: None)
  Receive Date: 20070409
  Receipt Date: 20070329
  Transmission Date: 20071010
  Serious: Yes (Death, Other)
  Sender: FDA-Public Use
  Company Number: JP-ELI_LILLY_AND_COMPANY-JP200703000321

PATIENT
  Age: 67 Year
  Sex: Female
  Weight: 37.1 kg

DRUGS (8)
  1. ZYPREXA [Suspect]
     Indication: SCHIZOPHRENIA, PARANOID TYPE
     Dosage: 10 MG, DAILY (1/D)
     Route: 048
     Dates: start: 20060807, end: 20060827
  2. ZYPREXA [Suspect]
     Dosage: 20 MG, DAILY (1/D)
     Route: 048
     Dates: start: 20060828, end: 20061002
  3. ZYPREXA [Suspect]
     Dosage: 5 MG, AS NEEDED
     Route: 048
     Dates: start: 20061003, end: 20061223
  4. ZYPREXA [Suspect]
     Dosage: 10 MG, DAILY (1/D)
     Route: 048
     Dates: start: 20061224
  5. MAGNESIUM OXIDE [Concomitant]
     Indication: CONSTIPATION
     Route: 065
  6. PURSENNID [Concomitant]
     Indication: CONSTIPATION
     Route: 065
  7. NITRAZEPAM [Concomitant]
     Dosage: 10 MG, DAILY (1/D)
     Route: 065
     Dates: end: 20060828
  8. GLUCAGON [Concomitant]
     Route: 065
     Dates: start: 20070227

REACTIONS (8)
  - BLOOD PRESSURE DECREASED [None]
  - DEATH [None]
  - GASTRIC ULCER HAEMORRHAGE [None]
  - HAEMATEMESIS [None]
  - ILEUS [None]
  - INSOMNIA [None]
  - PSYCHIATRIC SYMPTOM [None]
  - PYLORIC STENOSIS [None]
